FAERS Safety Report 17233135 (Version 9)
Quarter: 2020Q3

REPORT INFORMATION
  Report Type: Spontaneous
  Country: JP (occurrence: JP)
  Receive Date: 20200104
  Receipt Date: 20200924
  Transmission Date: 20201102
  Serious: Yes (Death, Hospitalization, Other)
  Sender: FDA-Public Use
  Company Number: JP-AMGEN-JPNNI2019123686

PATIENT
  Age: 25 Year
  Sex: Female

DRUGS (11)
  1. PROGRAF [Suspect]
     Active Substance: TACROLIMUS
     Indication: ALLOGENIC STEM CELL TRANSPLANTATION
     Dosage: 0.4 MILLIGRAM, 25?FOLD DOSE
     Route: 065
     Dates: end: 2020
  2. BLINCYTO [Suspect]
     Active Substance: BLINATUMOMAB
     Indication: ACUTE LYMPHOCYTIC LEUKAEMIA RECURRENT
     Dosage: UNK
     Route: 065
     Dates: start: 201906, end: 201908
  3. VFEND [Concomitant]
     Active Substance: VORICONAZOLE
  4. CEFEPIME [Concomitant]
     Active Substance: CEFEPIME HYDROCHLORIDE
     Indication: PROPHYLAXIS
  5. ZOVIRAX [Concomitant]
     Active Substance: ACYCLOVIR
     Indication: HERPES ZOSTER
  6. PROGRAF [Suspect]
     Active Substance: TACROLIMUS
     Indication: PROPHYLAXIS
  7. PREVYMIS [Concomitant]
     Active Substance: LETERMOVIR
     Indication: PROPHYLAXIS
  8. PREDONINE [Concomitant]
     Active Substance: PREDNISOLONE
     Dosage: 40 MILLIGRAM
     Dates: end: 202003
  9. TEICOPLANIN [Concomitant]
     Active Substance: TEICOPLANIN
     Indication: PROPHYLAXIS
  10. FUNGUARD [Suspect]
     Active Substance: MICAFUNGIN SODIUM
     Indication: PRODUCT USED FOR UNKNOWN INDICATION
     Dosage: 50 MILLIGRAM, QD
     Route: 065
  11. NEORAL [Concomitant]
     Active Substance: CYCLOSPORINE
     Dosage: UNK

REACTIONS (19)
  - Melaena [Unknown]
  - Mucormycosis [Fatal]
  - Constipation [Unknown]
  - Platelet count decreased [Unknown]
  - Decreased immune responsiveness [Unknown]
  - Feeding disorder [Unknown]
  - Haematemesis [Unknown]
  - Decreased appetite [Unknown]
  - Erosive oesophagitis [Unknown]
  - Cytomegalovirus infection [Fatal]
  - Gastrointestinal erosion [Unknown]
  - Therapeutic product effect decreased [Unknown]
  - Alopecia [Unknown]
  - Acute lymphocytic leukaemia recurrent [Fatal]
  - Gastrointestinal haemorrhage [Unknown]
  - Visual impairment [Unknown]
  - Laryngeal inflammation [Unknown]
  - Lymphocyte count decreased [Unknown]
  - Gait inability [Unknown]

NARRATIVE: CASE EVENT DATE: 2019
